FAERS Safety Report 12633307 (Version 2)
Quarter: 2016Q3

REPORT INFORMATION
  Report Type: Spontaneous
  Country: US (occurrence: US)
  Receive Date: 20160808
  Receipt Date: 20160808
  Transmission Date: 20161109
  Serious: No
  Sender: FDA-Public Use
  Company Number: US-BEH-2016060453

PATIENT
  Sex: Female
  Weight: 90 kg

DRUGS (14)
  1. CLINDAMYCIN [Concomitant]
     Active Substance: CLINDAMYCIN\CLINDAMYCIN PHOSPHATE
  2. DIFLUCAN [Concomitant]
     Active Substance: FLUCONAZOLE
  3. VANCOMYCIN [Concomitant]
     Active Substance: VANCOMYCIN
  4. L-METHYLFOLATE [Concomitant]
  5. ACETAMINOPHEN. [Concomitant]
     Active Substance: ACETAMINOPHEN
  6. XANAX [Concomitant]
     Active Substance: ALPRAZOLAM
  7. PROBIOTIC [Concomitant]
     Active Substance: PROBIOTICS NOS
  8. EPIPEN [Concomitant]
     Active Substance: EPINEPHRINE
  9. IBUPROFEN. [Concomitant]
     Active Substance: IBUPROFEN
  10. DIPHENHYDRAMINE. [Concomitant]
     Active Substance: DIPHENHYDRAMINE
  11. LIDOCAINE. [Concomitant]
     Active Substance: LIDOCAINE
  12. HIZENTRA [Suspect]
     Active Substance: HUMAN IMMUNOGLOBULIN G
     Indication: SELECTIVE IGG SUBCLASS DEFICIENCY
     Route: 058
  13. MEPRON [Concomitant]
     Active Substance: ATOVAQUONE
  14. FLAGYL [Concomitant]
     Active Substance: METRONIDAZOLE\METRONIDAZOLE HYDROCHLORIDE

REACTIONS (5)
  - Pyrexia [Unknown]
  - Injection site pain [Unknown]
  - Exposure during pregnancy [Unknown]
  - Chills [Unknown]
  - Injection site haemorrhage [Unknown]
